FAERS Safety Report 8877699 (Version 1)
Quarter: 2012Q4

REPORT INFORMATION
  Report Type: 
  Country: AR (occurrence: AR)
  Receive Date: 20121024
  Receipt Date: 20121024
  Transmission Date: 20130627
  Serious: Yes (Other)
  Sender: FDA-Public Use
  Company Number: PHHY2012AR042065

PATIENT
  Sex: Female
  Weight: 70 kg

DRUGS (3)
  1. EXELON PATCH [Suspect]
     Dosage: 4.6 mg/ 24hrs
     Route: 062
  2. EXELON PATCH [Suspect]
     Dosage: 9.5 mg/ 24hrs
     Route: 062
     Dates: start: 201205
  3. EXELON PATCH [Suspect]
     Dosage: 4.6 mg, UNK
     Route: 062

REACTIONS (5)
  - Torsade de pointes [Recovering/Resolving]
  - Ventricular arrhythmia [Recovering/Resolving]
  - Palpitations [Unknown]
  - Arrhythmia supraventricular [Recovering/Resolving]
  - Gait disturbance [Recovering/Resolving]
